FAERS Safety Report 9126968 (Version 1)
Quarter: 2013Q1

REPORT INFORMATION
  Report Type: Spontaneous
  Country: US (occurrence: US)
  Receive Date: 20130122
  Receipt Date: 20130122
  Transmission Date: 20140127
  Serious: Yes (Death)
  Sender: FDA-Public Use
  Company Number: US-GLAXOSMITHKLINE-A1009150A

PATIENT
  Age: 92 Year
  Sex: Female

DRUGS (14)
  1. TYKERB [Suspect]
     Indication: NEOPLASM MALIGNANT
     Dosage: 250MG SEE DOSAGE TEXT
     Route: 048
     Dates: start: 20100813, end: 20130114
  2. NORVASC [Concomitant]
  3. FOSAMAX [Concomitant]
  4. FEMARA [Concomitant]
  5. LIPITOR [Concomitant]
  6. PEPCID [Concomitant]
  7. LEXAPRO [Concomitant]
  8. XANAX XR [Concomitant]
  9. ARICEPT [Concomitant]
  10. RISPERDAL [Concomitant]
  11. AMITIZA [Concomitant]
  12. TOPROL XL [Concomitant]
  13. LABETALOL [Concomitant]
  14. NAMENDA [Concomitant]

REACTIONS (1)
  - Death [Fatal]
